FAERS Safety Report 7254116-5 (Version None)
Quarter: 2011Q1

REPORT INFORMATION
  Report Type: 
  Country: None (occurrence: None)
  Receive Date: 20110129
  Receipt Date: 20100210
  Transmission Date: 20110831
  Serious: Yes (Hospitalization, Other)
  Sender: FDA-Public Use
  Company Number: US-ABBOTT-10P-163-0625531-00

PATIENT
  Sex: Female
  Weight: 99.426 kg

DRUGS (13)
  1. HUMIRA [Suspect]
     Indication: OSTEOARTHRITIS
  2. AMBIEN [Concomitant]
     Indication: INSOMNIA
  3. LISINOPRIL [Concomitant]
     Indication: BLOOD PRESSURE
  4. FUROSEMIDE [Concomitant]
     Indication: CARDIOVASCULAR EVENT PROPHYLAXIS
  5. LEVOTHYROXINE SODIUM [Concomitant]
     Indication: HYPOTHYROIDISM
  6. PREDNISONE [Concomitant]
     Indication: RHEUMATOID ARTHRITIS
  7. METFORMIN [Concomitant]
     Indication: DIABETES MELLITUS
  8. SIMVASTATIN [Concomitant]
     Indication: BLOOD CHOLESTEROL
  9. HUMIRA [Suspect]
     Indication: RHEUMATOID ARTHRITIS
     Route: 058
     Dates: start: 20091101, end: 20091101
  10. PREDNISONE [Concomitant]
     Indication: PAIN
  11. SOTALOL HCL [Concomitant]
     Indication: CARDIOVASCULAR EVENT PROPHYLAXIS
  12. DARVOCET-N 100 [Concomitant]
     Indication: PRODUCT USED FOR UNKNOWN INDICATION
  13. ACIPHEX [Concomitant]
     Indication: PRODUCT USED FOR UNKNOWN INDICATION

REACTIONS (4)
  - STAPHYLOCOCCAL INFECTION [None]
  - JOINT SWELLING [None]
  - INCISION SITE INFECTION [None]
  - ARTHRALGIA [None]
